FAERS Safety Report 5033842-2 (Version None)
Quarter: 2006Q2

REPORT INFORMATION
  Report Type: 
  Country: None (occurrence: None)
  Receive Date: 20060623
  Receipt Date: 20060206
  Transmission Date: 20061013
  Serious: Yes (Death)
  Sender: FDA-Public Use
  Company Number: 2006AP00649

PATIENT
  Age: 73 Year
  Sex: Male

DRUGS (14)
  1. CRESTOR [Suspect]
     Indication: HYPERCHOLESTEROLAEMIA
     Route: 048
     Dates: start: 20051101, end: 20060125
  2. MAINTATE [Concomitant]
     Indication: HYPERTENSION
     Dosage: STARTED BEFORE CRESTOR STARTED
     Route: 048
     Dates: end: 20060124
  3. ALLOPURINOL [Concomitant]
     Indication: HYPERURICAEMIA
     Dosage: STARTED BEFORE CRESTOR STARTED
     Route: 048
     Dates: end: 20060202
  4. COVERSYL [Concomitant]
     Indication: HYPERTENSION
     Dosage: STARTED BEFORE CRESTOR STARTED
     Route: 048
     Dates: end: 20060202
  5. NIVADIL [Concomitant]
     Indication: HYPERTENSION
     Dosage: STARTED BEFORE CRESTOR STARTED
     Route: 048
     Dates: end: 20060202
  6. MEXITIL [Concomitant]
     Indication: TACHYARRHYTHMIA
     Dosage: STARTED BEFORE CRESTOR STARTED
     Route: 048
     Dates: end: 20060202
  7. POLARAMINE [Concomitant]
     Indication: RHINITIS ALLERGIC
     Dosage: STARTED BEFORE CRESTOR STARTED
     Route: 048
     Dates: end: 20060202
  8. ASPIRIN [Concomitant]
     Indication: CEREBRAL INFARCTION
     Dosage: STARTED BEFORE CRESTOR STARTED
     Route: 048
     Dates: end: 20060202
  9. GASTER D [Concomitant]
     Indication: GASTRITIS
     Dosage: STARTED BEFORE CRESTOR STARTED
     Route: 048
     Dates: end: 20060202
  10. LACTEC-G [Concomitant]
     Indication: PROPHYLAXIS AGAINST DEHYDRATION
     Route: 042
     Dates: start: 20060117, end: 20060120
  11. SUBVITAN-N [Concomitant]
     Indication: HYPOVITAMINOSIS
     Route: 042
     Dates: start: 20060117, end: 20060120
  12. ALDACTONE [Concomitant]
     Indication: CARDIAC FAILURE CHRONIC
     Route: 048
     Dates: start: 20060104, end: 20060117
  13. RACOL [Concomitant]
     Indication: ABDOMINAL DISCOMFORT
     Route: 048
     Dates: start: 20060110, end: 20060117
  14. CLEANAL [Concomitant]
     Indication: BRONCHITIS ACUTE
     Route: 048
     Dates: start: 20060110, end: 20060117

REACTIONS (10)
  - ANAEMIA [None]
  - ANOREXIA [None]
  - CARDIOMEGALY [None]
  - HEPATIC CYST [None]
  - LYMPHADENOPATHY [None]
  - MITRAL VALVE INCOMPETENCE [None]
  - MYELODYSPLASTIC SYNDROME [None]
  - PNEUMONIA [None]
  - PULMONARY ARTERY DILATATION [None]
  - SEPSIS [None]
